FAERS Safety Report 24170501 (Version 1)
Quarter: 2024Q3

REPORT INFORMATION
  Report Type: Spontaneous
  Country: US (occurrence: US)
  Receive Date: 20240803
  Receipt Date: 20240803
  Transmission Date: 20241016
  Serious: Yes (Hospitalization, Other)
  Sender: DR REDDYS
  Company Number: US-DRL-USA-LIT/USA/24/0011099

PATIENT
  Age: 66 Year
  Sex: Male

DRUGS (1)
  1. METOPROLOL [Suspect]
     Active Substance: METOPROLOL
     Indication: Coronary artery disease

REACTIONS (4)
  - Condition aggravated [Unknown]
  - Ventricular hypokinesia [Unknown]
  - Coronary artery stenosis [Unknown]
  - Product use in unapproved indication [Unknown]
